FAERS Safety Report 4284654-9 (Version None)
Quarter: 2004Q1

REPORT INFORMATION
  Report Type: 
  Country: None (occurrence: None)
  Receive Date: 20040130
  Receipt Date: 20040120
  Transmission Date: 20041129
  Serious: No
  Sender: FDA-Public Use
  Company Number: 2003AP01034

PATIENT
  Age: 41 Year
  Sex: Female

DRUGS (13)
  1. SEROQUEL [Suspect]
     Indication: SCHIZOPHRENIA
     Dosage: 100 MG QD PO
     Route: 048
     Dates: start: 20020403, end: 20020417
  2. SEROQUEL [Suspect]
     Indication: SCHIZOPHRENIA
     Dosage: 50 MG TID PO
     Route: 048
     Dates: start: 20020418, end: 20020422
  3. SEROQUEL [Suspect]
     Indication: SCHIZOPHRENIA
     Dosage: 100 MG TID PO
     Route: 048
     Dates: start: 20020423, end: 20020508
  4. MS POULTICE [Concomitant]
  5. IMPROMEN [Concomitant]
  6. HALOPERIDOL [Concomitant]
  7. AKINETON [Concomitant]
  8. BASEN [Concomitant]
  9. LEXOTAN [Concomitant]
  10. RISPERDAL [Concomitant]
  11. TEGRETOL [Concomitant]
  12. LENDORM [Concomitant]
  13. ROHYPNOL [Concomitant]

REACTIONS (11)
  - CONDITION AGGRAVATED [None]
  - CONSTIPATION [None]
  - DIABETES MELLITUS [None]
  - DRUG INEFFECTIVE [None]
  - HYPERTENSION [None]
  - MYOFASCITIS [None]
  - NEGLECT OF PERSONAL APPEARANCE [None]
  - STRESS SYMPTOMS [None]
  - TENSION [None]
  - TINEA PEDIS [None]
  - TOOTHACHE [None]
